FAERS Safety Report 7517909-2 (Version None)
Quarter: 2011Q2

REPORT INFORMATION
  Report Type: 
  Country: None (occurrence: None)
  Receive Date: 20110523
  Receipt Date: 20110506
  Transmission Date: 20111010
  Serious: Yes (Hospitalization, Other)
  Sender: FDA-Public Use
  Company Number: ACO_24000_2011

PATIENT
  Age: 58 Year
  Sex: Female

DRUGS (17)
  1. LEXAPRO [Concomitant]
  2. FISH OIL (FISH OIL) [Concomitant]
  3. TENUATE DOSPAN [Concomitant]
  4. MULTIVITAMIN /00097801/ (ASCORBIC ACID, CALCIUM PANTOTHENATE, ERGOCALC [Concomitant]
  5. COPAZONE (GLATIRAMER ACETATE) [Concomitant]
  6. OXYBUTYNIN [Concomitant]
  7. INDAPAMIDE [Concomitant]
  8. AMPYRA [Suspect]
     Indication: PRODUCT USED FOR UNKNOWN INDICATION
     Dosage: 10 MG,SINGLE
     Dates: start: 20110101, end: 20110101
  9. REQUIP [Concomitant]
  10. FOLIC ACID [Concomitant]
  11. REMERON [Concomitant]
  12. IBUPROFEN [Concomitant]
  13. FERROUS GLUCONATE (FERROUS GLUCONATE) [Concomitant]
  14. MECLIZINE /00072801/ [Concomitant]
  15. PROVIGIL [Concomitant]
  16. BACLOFEN [Concomitant]
  17. CYCLOBENZAPRINE [Concomitant]

REACTIONS (2)
  - CONVULSION [None]
  - MOANING [None]
